FAERS Safety Report 13794145 (Version 2)
Quarter: 2017Q3

REPORT INFORMATION
  Report Type: Report from Study
  Country: AU (occurrence: AU)
  Receive Date: 20170726
  Receipt Date: 20170829
  Transmission Date: 20171127
  Serious: Yes (Hospitalization)
  Sender: FDA-Public Use
  Company Number: AU-ROCHE-1904890

PATIENT
  Age: 66 Year
  Sex: Male
  Weight: 81.4 kg

DRUGS (9)
  1. BACTRIM DS [Concomitant]
     Active Substance: SULFAMETHOXAZOLE\TRIMETHOPRIM
     Indication: INFECTION PROPHYLAXIS
     Route: 065
     Dates: start: 20160502
  2. BACTRIM DS [Concomitant]
     Active Substance: SULFAMETHOXAZOLE\TRIMETHOPRIM
     Indication: PNEUMOCYSTIS JIROVECII PNEUMONIA
  3. PANADEINE FORTE [Concomitant]
     Active Substance: ACETAMINOPHEN\CODEINE PHOSPHATE
     Indication: GOUT
     Route: 065
     Dates: start: 20160313
  4. VENETOCLAX. [Suspect]
     Active Substance: VENETOCLAX
     Indication: NON-HODGKIN^S LYMPHOMA
     Dosage: STANDARD DOSE PER PROTOCOL?MOST RECENT DOSE: 02/MAR/2016 (800 MG)
     Route: 048
     Dates: start: 20160302, end: 20170319
  5. RITUXIMAB. [Suspect]
     Active Substance: RITUXIMAB
     Indication: NON-HODGKIN^S LYMPHOMA
     Dosage: STANDARD DOSE PER PROTOCOL?MOST RECENT DOSE: 12/APR/2016 AT 1220 (750 MG)
     Route: 042
     Dates: start: 20160302
  6. BENDAMUSTINE [Suspect]
     Active Substance: BENDAMUSTINE
     Indication: NON-HODGKIN^S LYMPHOMA
     Dosage: STANDARD DOSE PER PROTOCOL?MOST RECENT DOSE: 29/JUN/2016 AT 0910 (180 MG)
     Route: 042
     Dates: start: 20160302, end: 20160629
  7. ALLOPURINOL. [Concomitant]
     Active Substance: ALLOPURINOL
     Indication: GOUT
  8. AMLODIPINE [Concomitant]
     Active Substance: AMLODIPINE BESYLATE
     Indication: HYPERTENSION
     Route: 065
     Dates: start: 20160303
  9. RITUXIMAB. [Suspect]
     Active Substance: RITUXIMAB
     Route: 042
     Dates: end: 20160812

REACTIONS (2)
  - Pneumocystis jirovecii pneumonia [Recovered/Resolved]
  - Lung infection [Recovered/Resolved]

NARRATIVE: CASE EVENT DATE: 20170228
